FAERS Safety Report 20838566 (Version 1)
Quarter: 2022Q2

REPORT INFORMATION
  Report Type: Spontaneous
  Country: JP (occurrence: JP)
  Receive Date: 20220517
  Receipt Date: 20220517
  Transmission Date: 20220720
  Serious: Yes (Hospitalization, Other)
  Sender: FDA-Public Use
  Company Number: JP-PFIZER INC-202200696268

PATIENT

DRUGS (1)
  1. RHEUMATREX [Suspect]
     Active Substance: METHOTREXATE SODIUM
     Indication: Rheumatoid arthritis
     Dosage: 8 MG, DAILY (4 CAPSULES A DAY FOR 6 DAYS)
     Route: 048

REACTIONS (5)
  - Pneumonia [Unknown]
  - Myelosuppression [Unknown]
  - Inappropriate schedule of product administration [Unknown]
  - Stomatitis [Unknown]
  - Mouth haemorrhage [Unknown]
